FAERS Safety Report 24012229 (Version 1)
Quarter: 2024Q2

REPORT INFORMATION
  Report Type: Spontaneous
  Country: VN (occurrence: None)
  Receive Date: 20240625
  Receipt Date: 20240625
  Transmission Date: 20240716
  Serious: Yes (Other)
  Sender: FDA-Public Use
  Company Number: 2024A143813

PATIENT
  Age: 27028 Day

DRUGS (1)
  1. TAGRISSO [Suspect]
     Active Substance: OSIMERTINIB
     Route: 048
     Dates: start: 202304

REACTIONS (3)
  - Lymphadenopathy [Unknown]
  - Disease progression [Unknown]
  - Chest pain [Unknown]
